FAERS Safety Report 18992064 (Version 2)
Quarter: 2021Q1

REPORT INFORMATION
  Report Type: Report from Study
  Country: US (occurrence: US)
  Receive Date: 20210310
  Receipt Date: 20210315
  Transmission Date: 20210420
  Serious: Yes (Hospitalization, Other)
  Sender: FDA-Public Use
  Company Number: US-BRISTOL-MYERS SQUIBB COMPANY-BMS-2021-023524

PATIENT
  Sex: Male
  Weight: 70.31 kg

DRUGS (1)
  1. APIXABAN [Suspect]
     Active Substance: APIXABAN
     Indication: PRODUCT USED FOR UNKNOWN INDICATION
     Dosage: UNK
     Route: 065
     Dates: start: 202001

REACTIONS (6)
  - Fatigue [Unknown]
  - Apathy [Unknown]
  - Dysphagia [Unknown]
  - Cough [Unknown]
  - Hip fracture [Unknown]
  - Lethargy [Unknown]
